FAERS Safety Report 20692663 (Version 1)
Quarter: 2022Q2

REPORT INFORMATION
  Report Type: Spontaneous
  Country: US (occurrence: None)
  Receive Date: 20220409
  Receipt Date: 20220409
  Transmission Date: 20220721
  Serious: Yes (Other)
  Sender: FDA-Public Use
  Company Number: 2018SF13505

PATIENT
  Age: 32833 Day
  Sex: Female
  Weight: 95.3 kg

DRUGS (54)
  1. PRILOSEC [Suspect]
     Active Substance: OMEPRAZOLE MAGNESIUM
     Indication: Gastrooesophageal reflux disease
     Dosage: GENERIC
     Route: 065
     Dates: start: 20050101, end: 20170101
  2. PRILOSEC [Suspect]
     Active Substance: OMEPRAZOLE MAGNESIUM
     Indication: Gastrooesophageal reflux disease
     Dosage: GENERIC
     Route: 065
     Dates: start: 20171207
  3. DEXILANT [Suspect]
     Active Substance: DEXLANSOPRAZOLE
     Indication: Gastrooesophageal reflux disease
     Route: 065
     Dates: start: 20100101, end: 20171231
  4. DEXILANT [Suspect]
     Active Substance: DEXLANSOPRAZOLE
     Indication: Gastrooesophageal reflux disease
     Route: 065
     Dates: start: 2010, end: 2017
  5. PROTONIX [Suspect]
     Active Substance: PANTOPRAZOLE SODIUM
     Indication: Gastrooesophageal reflux disease
     Route: 065
     Dates: start: 20050101, end: 20171231
  6. PROTONIX [Suspect]
     Active Substance: PANTOPRAZOLE SODIUM
     Indication: Gastrooesophageal reflux disease
     Dosage: GENERIC
     Route: 065
     Dates: start: 20170510, end: 20171206
  7. PROTONIX [Suspect]
     Active Substance: PANTOPRAZOLE SODIUM
     Indication: Gastrooesophageal reflux disease
     Route: 065
     Dates: start: 20090118
  8. ELIQUIS [Concomitant]
     Active Substance: APIXABAN
     Indication: Anticoagulant therapy
     Dates: start: 20170502
  9. FUROSEMIDE [Concomitant]
     Active Substance: FUROSEMIDE
  10. TOPROL XL [Concomitant]
     Active Substance: METOPROLOL SUCCINATE
  11. ATORVASTATIN [Concomitant]
     Active Substance: ATORVASTATIN
  12. LEUCINE/VALINE/CALCITONIN/PHENYLALANINE/METHIONINE/LYSINE/CALCIUM FLUO [Concomitant]
  13. ALBUTEROL [Concomitant]
     Active Substance: ALBUTEROL
  14. ASPIRIN [Concomitant]
     Active Substance: ASPIRIN
  15. GABAPENTIN [Concomitant]
     Active Substance: GABAPENTIN
     Indication: Neuralgia
     Dates: start: 20180101, end: 20180503
  16. LISINOPRIL [Concomitant]
     Active Substance: LISINOPRIL
  17. APLISOL [Concomitant]
     Active Substance: TUBERCULIN PURIFIED PROTEIN DERIVATIVE
  18. SPIRIVA [Concomitant]
     Active Substance: TIOTROPIUM BROMIDE MONOHYDRATE
     Indication: Asthma
     Dates: start: 20131220, end: 20180307
  19. ZOSYN [Concomitant]
     Active Substance: PIPERACILLIN SODIUM\TAZOBACTAM SODIUM
  20. METOPROLOL [Concomitant]
     Active Substance: METOPROLOL
     Indication: Hypertension
     Dates: start: 20130826
  21. METOLAZONE [Concomitant]
     Active Substance: METOLAZONE
  22. APIXABAN [Concomitant]
     Active Substance: APIXABAN
  23. PEPERACILLIN [Concomitant]
  24. NOREPINEPHRINE [Concomitant]
     Active Substance: NOREPINEPHRINE
  25. SODIUM CHLORIDE [Concomitant]
     Active Substance: SODIUM CHLORIDE
  26. TORSEMIDE [Concomitant]
     Active Substance: TORSEMIDE
  27. GUAIFENESIN [Concomitant]
     Active Substance: GUAIFENESIN
  28. LACTULOSE [Concomitant]
     Active Substance: LACTULOSE
  29. NYSTATIN [Concomitant]
     Active Substance: NYSTATIN
  30. PROAIR HFA [Concomitant]
     Active Substance: ALBUTEROL SULFATE
     Indication: Wheezing
  31. MIDODRINE [Concomitant]
     Active Substance: MIDODRINE
  32. ROCEPHIN [Concomitant]
     Active Substance: CEFTRIAXONE SODIUM
  33. INCRUSE ELLIPTA [Concomitant]
     Active Substance: UMECLIDINIUM BROMIDE
  34. CARVEDILOL [Concomitant]
     Active Substance: CARVEDILOL
  35. IPRATROPIUM [Concomitant]
     Active Substance: IPRATROPIUM
  36. CALCIUM CARBONATE [Concomitant]
     Active Substance: CALCIUM CARBONATE
  37. CYCLOBENZAPRINE [Concomitant]
     Active Substance: CYCLOBENZAPRINE
  38. DULOXETINE [Concomitant]
     Active Substance: DULOXETINE
  39. HYDROCORTISONE [Concomitant]
     Active Substance: HYDROCORTISONE
  40. DOCUSASTE SODIUM [Concomitant]
  41. SPIRONOLACTONE [Concomitant]
     Active Substance: SPIRONOLACTONE
  42. WARFARIN [Concomitant]
     Active Substance: WARFARIN
  43. FLUTICASONE [Concomitant]
     Active Substance: FLUTICASONE
  44. ADVAIR DSKUS [Concomitant]
  45. CHLORHEXIDINE [Concomitant]
     Active Substance: CHLORHEXIDINE
  46. SYMBICORT [Concomitant]
     Active Substance: BUDESONIDE\FORMOTEROL FUMARATE DIHYDRATE
  47. CEPHALEXIN [Concomitant]
     Active Substance: CEPHALEXIN
  48. PREDNISONE [Concomitant]
     Active Substance: PREDNISONE
  49. AMIODARONE [Concomitant]
     Active Substance: AMIODARONE
  50. LASIX [Concomitant]
     Active Substance: FUROSEMIDE
     Indication: Cardiac failure chronic
     Dates: start: 20130826
  51. TRAMADOL [Concomitant]
     Active Substance: TRAMADOL
     Indication: Analgesic therapy
     Dates: start: 20130826, end: 20150523
  52. TYLENOL [Concomitant]
     Active Substance: ACETAMINOPHEN
     Indication: Chills
     Dates: start: 20131119
  53. TYLENOL [Concomitant]
     Active Substance: ACETAMINOPHEN
     Indication: Pyrexia
     Dates: start: 20131119
  54. POTASSIUM CHLORIDE [Concomitant]
     Active Substance: POTASSIUM CHLORIDE
     Indication: Hypokalaemia
     Dates: start: 20131209

REACTIONS (8)
  - Chronic kidney disease [Not Recovered/Not Resolved]
  - Renal injury [Unknown]
  - Acute kidney injury [Not Recovered/Not Resolved]
  - Renal failure [Not Recovered/Not Resolved]
  - End stage renal disease [Unknown]
  - Nephrogenic anaemia [Unknown]
  - Metabolic acidosis [Unknown]
  - Gastrooesophageal reflux disease [Not Recovered/Not Resolved]

NARRATIVE: CASE EVENT DATE: 20170915
